FAERS Safety Report 11300751 (Version 1)
Quarter: 2015Q3

REPORT INFORMATION
  Report Type: Spontaneous
  Country: US (occurrence: US)
  Receive Date: 20150722
  Receipt Date: 20150722
  Transmission Date: 20151125
  Serious: No
  Sender: FDA-Public Use
  Company Number: US-ELI_LILLY_AND_COMPANY-US201402006559

PATIENT
  Sex: Female

DRUGS (12)
  1. ASA [Concomitant]
     Active Substance: ASPIRIN
  2. ZINC [Concomitant]
     Active Substance: ZINC\ZINC CHLORIDE
  3. VITAMIN B12 [Concomitant]
     Active Substance: CYANOCOBALAMIN
  4. OMEGA 3 [Concomitant]
     Active Substance: OMEGA-3 FATTY ACIDS
  5. VITAMIN D3 [Concomitant]
     Active Substance: CHOLECALCIFEROL
  6. VITAMIN E [Concomitant]
     Active Substance: .ALPHA.-TOCOPHEROL
  7. CALCIUM [Concomitant]
     Active Substance: CALCIUM
  8. MULTIVITAMIN [Concomitant]
     Active Substance: VITAMINS
  9. EFFIENT [Suspect]
     Active Substance: PRASUGREL HYDROCHLORIDE
     Indication: STENT PLACEMENT
     Dosage: 10 MG, QD
  10. BIOTIN [Concomitant]
     Active Substance: BIOTIN
  11. VITAMIN B6 [Concomitant]
     Active Substance: PYRIDOXINE HYDROCHLORIDE
  12. COQ10 [Concomitant]
     Active Substance: UBIDECARENONE

REACTIONS (5)
  - Contusion [Unknown]
  - Haemorrhage [Recovered/Resolved]
  - Crying [Unknown]
  - Medication error [Unknown]
  - Depression [Unknown]
